FAERS Safety Report 5629514-3 (Version None)
Quarter: 2008Q1

REPORT INFORMATION
  Report Type: 
  Country: None (occurrence: None)
  Receive Date: 20080214
  Receipt Date: 20080214
  Transmission Date: 20080703
  Serious: No
  Sender: FDA-Public Use
  Company Number: None

PATIENT
  Sex: Male

DRUGS (1)
  1. CARBAMAZEPINE [Suspect]
     Indication: CONVULSION
     Dosage: 200 MGS Q MORNING PO 200MGS Q NOON PO 300 MGS Q HS PO
     Route: 048

REACTIONS (1)
  - DRUG INEFFECTIVE [None]
